FAERS Safety Report 9632592 (Version 2)
Quarter: 2013Q4

REPORT INFORMATION
  Report Type: Report from Study
  Country: CH (occurrence: CH)
  Receive Date: 20131018
  Receipt Date: 20131106
  Transmission Date: 20140711
  Serious: Yes (Death, Hospitalization, Other)
  Sender: FDA-Public Use
  Company Number: CH-ROCHE-1289871

PATIENT
  Age: 52 Year
  Sex: Male

DRUGS (2)
  1. ALTEPLASE [Suspect]
     Indication: PULMONARY EMBOLISM
     Route: 042
  2. UNFRACTIONATED HEPARIN [Suspect]
     Indication: PULMONARY EMBOLISM
     Route: 042

REACTIONS (4)
  - Multi-organ failure [Fatal]
  - Haemorrhage [Fatal]
  - Cardiogenic shock [Unknown]
  - Contraindication to medical treatment [Unknown]
